FAERS Safety Report 4853092-X (Version None)
Quarter: 2005Q4

REPORT INFORMATION
  Report Type: 
  Country: None (occurrence: None)
  Receive Date: 20051212
  Receipt Date: 20051122
  Transmission Date: 20060501
  Serious: Yes (Hospitalization)
  Sender: FDA-Public Use
  Company Number: US_0501110274

PATIENT
  Age: 1 Day
  Sex: Female

DRUGS (4)
  1. ZYPREXA [Suspect]
     Dosage: TRANSPLACENTAL
     Route: 064
  2. VALIUM [Concomitant]
  3. PAXIL [Concomitant]
  4. CLONAPAM (CLONAZEPAM) [Concomitant]

REACTIONS (7)
  - APGAR SCORE LOW [None]
  - CAESAREAN SECTION [None]
  - DEVELOPMENTAL DELAY [None]
  - DRUG EXPOSURE DURING PREGNANCY [None]
  - FEEDING DISORDER NEONATAL [None]
  - SPEECH DISORDER DEVELOPMENTAL [None]
  - WEIGHT GAIN POOR [None]
